FAERS Safety Report 24811697 (Version 1)
Quarter: 2025Q1

REPORT INFORMATION
  Report Type: Spontaneous
  Country: ES (occurrence: ES)
  Receive Date: 20250106
  Receipt Date: 20250106
  Transmission Date: 20250409
  Serious: Yes (Other)
  Sender: NOVARTIS
  Company Number: ES-MYLANLABS-2024M1116515

PATIENT
  Age: 66 Year
  Sex: Female

DRUGS (12)
  1. LUTETIUM OXODOTREOTIDE LU-177 [Suspect]
     Active Substance: LUTETIUM OXODOTREOTIDE LU-177
     Indication: Paraganglion neoplasm malignant
     Route: 065
     Dates: start: 201706, end: 201801
  2. LUTETIUM OXODOTREOTIDE LU-177 [Suspect]
     Active Substance: LUTETIUM OXODOTREOTIDE LU-177
     Indication: Metastasis
  3. SUNITINIB [Suspect]
     Active Substance: SUNITINIB
     Indication: Paraganglion neoplasm malignant
     Dosage: 37.5 MILLIGRAM, QD
     Route: 065
     Dates: start: 201512
  4. SUNITINIB [Suspect]
     Active Substance: SUNITINIB
     Indication: Metastasis
  5. CYCLOPHOSPHAMIDE [Suspect]
     Active Substance: CYCLOPHOSPHAMIDE
     Indication: Paraganglion neoplasm malignant
     Dosage: 750 MILLIGRAM/SQ. METER, 28D CYCLE {AS A PART OF CVD REGIMEN, OF EVERY 28?DAYS CYCLE}
     Route: 065
     Dates: start: 201601
  6. CYCLOPHOSPHAMIDE [Suspect]
     Active Substance: CYCLOPHOSPHAMIDE
     Indication: Metastasis
  7. VINCRISTINE [Suspect]
     Active Substance: VINCRISTINE
     Indication: Paraganglion neoplasm malignant
     Dosage: 1.4 MILLIGRAM/SQ. METER, 28D CYCLE (AS A PART OF CVD REGIMEN, OF EVERY 28?DAYS CYCLE)
     Route: 065
     Dates: start: 201601
  8. VINCRISTINE [Suspect]
     Active Substance: VINCRISTINE
     Indication: Metastasis
  9. DACARBAZINE [Suspect]
     Active Substance: DACARBAZINE
     Indication: Paraganglion neoplasm malignant
     Dosage: 600 MILLIGRAM/SQ. METER, 28D CYCLE (AS A PART OF CVD REGIMEN, ON DAY?1 AND?DAY?2 OF EVERY 28?DAYS CY
     Route: 065
     Dates: start: 201601
  10. DACARBAZINE [Suspect]
     Active Substance: DACARBAZINE
     Indication: Metastasis
  11. TEMOZOLOMIDE [Concomitant]
     Active Substance: TEMOZOLOMIDE
     Indication: Paraganglion neoplasm malignant
     Dosage: 150 MILLIGRAM, QD {FOR 5?DAYS OF EVERY 28?DAYS CYCLE}
     Route: 065
     Dates: start: 201609
  12. TEMOZOLOMIDE [Concomitant]
     Active Substance: TEMOZOLOMIDE
     Indication: Metastasis

REACTIONS (3)
  - Drug ineffective for unapproved indication [Unknown]
  - Off label use [Unknown]
  - Drug intolerance [Unknown]
